FAERS Safety Report 5486556-9 (Version None)
Quarter: 2007Q3

REPORT INFORMATION
  Report Type: 
  Country: None (occurrence: None)
  Receive Date: 20070920
  Receipt Date: 20060828
  Transmission Date: 20080115
  Serious: Yes (Hospitalization)
  Sender: FDA-Public Use
  Company Number: 06P-163-0342758-00

PATIENT
  Age: 61 Year
  Sex: Female

DRUGS (5)
  1. DEPAKOTE ER [Suspect]
     Indication: BIPOLAR DISORDER
     Dosage: 500 MG, 2 IN 1 D, PER ORAL
     Route: 048
  2. ZIPRASIDONE HCL [Concomitant]
  3. AMLODIPINE BESYLATE [Concomitant]
  4. POTASSIUM CHLORIDE [Concomitant]
  5. LANSOPRAZOLE [Concomitant]

REACTIONS (3)
  - CONFUSIONAL STATE [None]
  - NEUTROPENIA [None]
  - TREATMENT NONCOMPLIANCE [None]
